FAERS Safety Report 7496193-2 (Version None)
Quarter: 2011Q2

REPORT INFORMATION
  Report Type: 
  Country: None (occurrence: None)
  Receive Date: 20110523
  Receipt Date: 20110512
  Transmission Date: 20111010
  Serious: Yes (Other)
  Sender: FDA-Public Use
  Company Number: PHFR2011GB03029

PATIENT
  Sex: Male

DRUGS (3)
  1. ACE INHIBITOR NOS [Concomitant]
  2. CLOZARIL [Suspect]
     Indication: SCHIZOPHRENIA
     Route: 048
     Dates: start: 20110216
  3. PROPRANOLOL [Concomitant]

REACTIONS (3)
  - CARDIAC MURMUR [None]
  - HEART VALVE INCOMPETENCE [None]
  - TACHYCARDIA [None]
